FAERS Safety Report 4784266-4 (Version None)
Quarter: 2005Q3

REPORT INFORMATION
  Report Type: 
  Country: None (occurrence: None)
  Receive Date: 20050930
  Receipt Date: 20050915
  Transmission Date: 20060218
  Serious: Yes (Hospitalization)
  Sender: FDA-Public Use
  Company Number: SEWYE979815SEP05

PATIENT
  Sex: Male

DRUGS (7)
  1. ENBREL [Suspect]
     Indication: RHEUMATOID ARTHRITIS
     Route: 058
     Dates: start: 20050512
  2. MOBIC [Concomitant]
  3. PREDNISOLONE [Concomitant]
     Dosage: 40 MG PER ADY
     Dates: start: 20050101
  4. PREDNISOLONE [Concomitant]
     Dates: start: 20050627
  5. FOLACIN [Concomitant]
  6. OMEPRAZOLE [Concomitant]
  7. METHOTREXATE [Concomitant]

REACTIONS (3)
  - ARTHRALGIA [None]
  - PERICARDITIS [None]
  - PNEUMONIA [None]
